FAERS Safety Report 15802866 (Version 1)
Quarter: 2019Q1

REPORT INFORMATION
  Report Type: Spontaneous
  Country: ES (occurrence: ES)
  Receive Date: 20190109
  Receipt Date: 20190109
  Transmission Date: 20190417
  Serious: Yes (Hospitalization)
  Sender: FDA-Public Use
  Company Number: ES-PFIZER INC-2019006441

PATIENT
  Age: 17 Year
  Sex: Male

DRUGS (1)
  1. METOTREXATO WYETH [Suspect]
     Active Substance: METHOTREXATE SODIUM
     Dosage: UNK UNK, 1X/DAY

REACTIONS (9)
  - Tracheal disorder [Unknown]
  - Product dispensing error [Unknown]
  - Throat irritation [Unknown]
  - Burn oesophageal [Unknown]
  - Wrong product administered [Unknown]
  - Oesophageal disorder [Unknown]
  - Airway burns [Unknown]
  - Throat lesion [Unknown]
  - Alopecia [Unknown]
